FAERS Safety Report 5278018-9 (Version None)
Quarter: 2007Q1

REPORT INFORMATION
  Report Type: 
  Country: None (occurrence: None)
  Receive Date: 20070321
  Receipt Date: 20070307
  Transmission Date: 20070707
  Serious: Yes (Hospitalization)
  Sender: FDA-Public Use
  Company Number: RENA-12036

PATIENT
  Age: 63 Year
  Sex: Female

DRUGS (3)
  1. RENAGEL [Suspect]
     Indication: HYPERPHOSPHATAEMIA
     Dosage: 2.4 G DAILY PO
     Route: 048
  2. PARICALCITOL [Concomitant]
  3. VINPOCETINE [Concomitant]

REACTIONS (2)
  - CALCINOSIS [None]
  - CALCIUM PHOSPHATE PRODUCT INCREASED [None]
